FAERS Safety Report 7777045-7 (Version None)
Quarter: 2011Q3

REPORT INFORMATION
  Report Type: 
  Country: None (occurrence: None)
  Receive Date: 20110926
  Receipt Date: 20110926
  Transmission Date: 20111222
  Serious: Yes (Other)
  Sender: FDA-Public Use
  Company Number: None

PATIENT
  Age: 41 Year
  Sex: Female
  Weight: 79.378 kg

DRUGS (1)
  1. CYMBALTA [Suspect]
     Indication: FIBROMYALGIA
     Dosage: 60 MG
     Route: 048
     Dates: start: 20110315, end: 20110916

REACTIONS (12)
  - ABDOMINAL PAIN UPPER [None]
  - ANXIETY [None]
  - NAUSEA [None]
  - TREMOR [None]
  - BEDRIDDEN [None]
  - AFFECT LABILITY [None]
  - VISION BLURRED [None]
  - DRY MOUTH [None]
  - FEAR [None]
  - PARAESTHESIA [None]
  - WITHDRAWAL SYNDROME [None]
  - DIZZINESS [None]
